FAERS Safety Report 9393363 (Version 1)
Quarter: 2013Q3

REPORT INFORMATION
  Report Type: Spontaneous
  Country: US (occurrence: None)
  Receive Date: 20130709
  Receipt Date: 20130709
  Transmission Date: 20140515
  Serious: Yes (Death)
  Sender: FDA-Public Use
  Company Number: None

PATIENT
  Age: 30 Year
  Sex: Male

DRUGS (2)
  1. CYCLOSPORINE [Suspect]
     Indication: TRANSPLANT
     Dosage: QAM
     Route: 048
  2. CHEMO DRUGS [Suspect]
     Dosage: QPM
     Route: 048

REACTIONS (1)
  - Adverse drug reaction [None]
